FAERS Safety Report 5117228-8 (Version None)
Quarter: 2006Q3

REPORT INFORMATION
  Report Type: 
  Country: None (occurrence: None)
  Receive Date: 20060926
  Receipt Date: 20060913
  Transmission Date: 20061208
  Serious: Yes (Hospitalization)
  Sender: FDA-Public Use
  Company Number: 2005121487

PATIENT
  Age: 58 Year
  Sex: Female
  Weight: 78.2 kg

DRUGS (16)
  1. SUTENT [Suspect]
     Indication: METASTATIC RENAL CELL CARCINOMA
     Dosage: 50 MG (50 MG, 1 IN 1 D), ORAL
     Route: 048
     Dates: start: 20050607
  2. METFORMIN HCL [Concomitant]
  3. LIPITOR [Concomitant]
  4. FOLIC ACID [Concomitant]
  5. TRICOR [Concomitant]
  6. ACETAMINOPHEN [Concomitant]
  7. PREVACID [Concomitant]
  8. ESTRACE [Concomitant]
  9. COZAAR [Concomitant]
  10. CENTRUM SILVER (ASCORBIC ACID, CALCIUM, MINERALS NOS, RETINOL, TOCOPHE [Concomitant]
  11. FISH OIL (FISH OIL) [Concomitant]
  12. XANAX [Concomitant]
  13. COMPAZINE [Concomitant]
  14. LOPRAMIDE (LOPERAMIDE) [Concomitant]
  15. CARAFATE [Concomitant]
  16. TRIPLE ANTIBIOTIC OINTMENT (BACITRACIN, NEOMYCIN SULFATE, POLYMYXIN B [Concomitant]

REACTIONS (2)
  - DIABETIC FOOT [None]
  - INFECTION [None]
